FAERS Safety Report 6968607-5 (Version None)
Quarter: 2010Q3

REPORT INFORMATION
  Report Type: 
  Country: None (occurrence: None)
  Receive Date: 20100907
  Receipt Date: 20100901
  Transmission Date: 20110219
  Serious: Yes (Death, Hospitalization)
  Sender: FDA-Public Use
  Company Number: US-ROCHE-725105

PATIENT
  Sex: Male
  Weight: 100.6 kg

DRUGS (14)
  1. BEVACIZUMAB [Suspect]
     Indication: NON-SMALL CELL LUNG CANCER
     Route: 042
     Dates: start: 20100622, end: 20100803
  2. PEMETREXED [Suspect]
     Indication: NON-SMALL CELL LUNG CANCER
     Route: 042
     Dates: start: 20100622, end: 20100803
  3. CARBOPLATIN [Suspect]
     Indication: NON-SMALL CELL LUNG CANCER
     Dosage: DOSE: 6 AUC
     Route: 042
     Dates: start: 20100622, end: 20100803
  4. FOLIC ACID [Concomitant]
     Dates: start: 20100615
  5. LORAZEPAM [Concomitant]
     Dates: start: 20100815
  6. PROCHLORPERAZINE MALEATE [Concomitant]
     Dates: start: 20100615
  7. METFORMIN [Concomitant]
     Dates: start: 20060401
  8. ONDANSETRON HYDROCHLORIDE [Concomitant]
     Dates: start: 20100615
  9. WARFARIN SODIUM [Concomitant]
     Dates: start: 20100517
  10. LIDOCAINE [Concomitant]
     Dates: start: 20100803
  11. VITAMIN B-12 [Concomitant]
     Dates: start: 20100615
  12. DEXAMETHASONE [Concomitant]
     Dates: start: 20100615
  13. FENOFIBRATE [Concomitant]
     Dates: start: 20100501
  14. FENTANYL CITRATE [Concomitant]
     Dates: start: 20100615

REACTIONS (1)
  - ANAEMIA [None]
